FAERS Safety Report 18923809 (Version 1)
Quarter: 2021Q1

REPORT INFORMATION
  Report Type: Report from Study
  Country: GB (occurrence: US)
  Receive Date: 20210222
  Receipt Date: 20210222
  Transmission Date: 20210420
  Serious: Yes (Other)
  Sender: FDA-Public Use
  Company Number: US-ASTELLAS-2016US033804

PATIENT
  Age: 71 Year
  Sex: Male

DRUGS (15)
  1. ERLOTINIB [Suspect]
     Active Substance: ERLOTINIB
     Dosage: 50 MG, ONCE DAILY (25 MG, TWO TABLETS EVERY DAY)
     Route: 048
  2. GABAPENTIN. [Concomitant]
     Active Substance: GABAPENTIN
     Indication: PRODUCT USED FOR UNKNOWN INDICATION
     Route: 065
  3. ZETIA [Concomitant]
     Active Substance: EZETIMIBE
     Indication: BLOOD CHOLESTEROL
     Dosage: 10 MG, ONCE DAILY (HAS BEEN TAKING FOR 15 OR 16 YEARS)
     Route: 048
  4. ERLOTINIB [Suspect]
     Active Substance: ERLOTINIB
     Indication: MALIGNANT RESPIRATORY TRACT NEOPLASM
     Dosage: 150 MG, ONCE DAILY (TAKE 1 TABLET BY MOUTH DAILY)
     Route: 048
     Dates: start: 201605
  5. ERLOTINIB [Suspect]
     Active Substance: ERLOTINIB
     Dosage: 150 MG, ONCE DAILY (USE AS DIRECTED BY PHYSICIAN)
     Route: 048
     Dates: start: 20160602
  6. VALSARTAN HCTZ [Concomitant]
     Active Substance: HYDROCHLOROTHIAZIDE\VALSARTAN
     Indication: PRODUCT USED FOR UNKNOWN INDICATION
     Dosage: 320?25 MG, UNKNOWN FREQ.
     Route: 065
  7. ERLOTINIB [Suspect]
     Active Substance: ERLOTINIB
     Route: 048
     Dates: start: 20180101
  8. ATORVASTATIN [Concomitant]
     Active Substance: ATORVASTATIN
     Indication: PRODUCT USED FOR UNKNOWN INDICATION
     Route: 065
  9. ERLOTINIB [Suspect]
     Active Substance: ERLOTINIB
     Route: 048
     Dates: start: 201609
  10. ALEVE [Concomitant]
     Active Substance: NAPROXEN SODIUM
     Indication: PRODUCT USED FOR UNKNOWN INDICATION
     Dosage: UNK UNK, UNKNOWN FREQ.
     Route: 065
  11. ERLOTINIB [Suspect]
     Active Substance: ERLOTINIB
     Route: 048
     Dates: start: 20160527
  12. ERLOTINIB [Suspect]
     Active Substance: ERLOTINIB
     Dosage: 75 MG, ONCE DAILY (HE HAS BEEN SPITTING THE 150 MG PILLS)
     Route: 048
     Dates: start: 201606
  13. ERLOTINIB [Suspect]
     Active Substance: ERLOTINIB
     Route: 048
     Dates: start: 201607, end: 201609
  14. ERLOTINIB [Suspect]
     Active Substance: ERLOTINIB
     Dosage: 150 MG, ONCE DAILY (TOOK FOR ABOUT 10?14 DAYS)
     Route: 048
     Dates: start: 20160610, end: 201606
  15. EDARBYCLOR [Concomitant]
     Active Substance: AZILSARTAN KAMEDOXOMIL\CHLORTHALIDONE
     Indication: HYPERTENSION
     Dosage: 1 DF, ONCE DAILY (40/12.5 TABLETS, TAKING 1?2 MONTHS)
     Route: 048
     Dates: start: 201608

REACTIONS (27)
  - Ageusia [Recovered/Resolved]
  - Salivary hypersecretion [Recovered/Resolved]
  - Weight increased [Unknown]
  - Foreign body sensation in eyes [Not Recovered/Not Resolved]
  - Alopecia [Not Recovered/Not Resolved]
  - Decreased appetite [Recovering/Resolving]
  - Tongue rough [Not Recovered/Not Resolved]
  - Acne [Recovering/Resolving]
  - Decreased appetite [Not Recovered/Not Resolved]
  - Stomatitis [Not Recovered/Not Resolved]
  - Diarrhoea [Recovered/Resolved with Sequelae]
  - Wrong technique in product usage process [Unknown]
  - Skin discolouration [Not Recovered/Not Resolved]
  - Glossitis [Not Recovered/Not Resolved]
  - Rash [Recovering/Resolving]
  - Weight decreased [Not Recovered/Not Resolved]
  - Dry mouth [Not Recovered/Not Resolved]
  - Eating disorder [Not Recovered/Not Resolved]
  - Decreased appetite [Not Recovered/Not Resolved]
  - Dysgeusia [Unknown]
  - Eye irritation [Not Recovered/Not Resolved]
  - Rash [Recovered/Resolved]
  - Ageusia [Not Recovered/Not Resolved]
  - Blood pressure inadequately controlled [Recovering/Resolving]
  - Hair texture abnormal [Recovering/Resolving]
  - Oral disorder [Recovered/Resolved]
  - Dry skin [Not Recovered/Not Resolved]

NARRATIVE: CASE EVENT DATE: 201606
